FAERS Safety Report 4917075-3 (Version None)
Quarter: 2006Q1

REPORT INFORMATION
  Report Type: 
  Country: None (occurrence: None)
  Receive Date: 20060216
  Receipt Date: 20060216
  Transmission Date: 20060701
  Serious: Yes (Other)
  Sender: FDA-Public Use
  Company Number: None

PATIENT
  Age: 59 Year
  Sex: Male
  Weight: 98.9 kg

DRUGS (5)
  1. PRAZOSIN [Suspect]
  2. SILDENAFIL CITRATE [Concomitant]
  3. CHLORPHENIRAMINE MALEATE [Concomitant]
  4. OMEPRAZOLE [Concomitant]
  5. FLUNISOLIDE [Concomitant]

REACTIONS (1)
  - DIZZINESS [None]
